FAERS Safety Report 22191024 (Version 16)
Quarter: 2025Q1

REPORT INFORMATION
  Report Type: Report from Study
  Country: US (occurrence: US)
  Receive Date: 20230410
  Receipt Date: 20250324
  Transmission Date: 20250409
  Serious: Yes (Other)
  Sender: GLAXOSMITHKLINE
  Company Number: US-GLAXOSMITHKLINE-US2020AMR258481

PATIENT

DRUGS (20)
  1. NIRAPARIB [Suspect]
     Active Substance: NIRAPARIB
     Indication: Ovarian cancer
     Dosage: 200 MG, QD
     Dates: start: 20201217
  2. NIRAPARIB [Suspect]
     Active Substance: NIRAPARIB
     Dosage: 200 MG, QD
     Dates: end: 20210125
  3. NIRAPARIB [Suspect]
     Active Substance: NIRAPARIB
     Dosage: 100 MG, QD
     Dates: start: 20210126, end: 20211010
  4. NIRAPARIB [Suspect]
     Active Substance: NIRAPARIB
     Dosage: 100 MG, QD (1 CAPSULE DAILY)
  5. NIRAPARIB [Suspect]
     Active Substance: NIRAPARIB
     Dosage: 100 MG, QD
     Route: 048
  6. NIRAPARIB [Suspect]
     Active Substance: NIRAPARIB
     Indication: Ovarian cancer
     Dosage: 100 MG, QD
  7. COVID-19 VACCINE NOS [Suspect]
     Active Substance: COVID-19 VACCINE
     Indication: COVID-19 prophylaxis
  8. LEVOTHYROXINE SODIUM [Concomitant]
     Active Substance: LEVOTHYROXINE SODIUM
     Indication: Product used for unknown indication
  9. PRAVASTATIN SODIUM [Concomitant]
     Active Substance: PRAVASTATIN SODIUM
     Indication: Product used for unknown indication
  10. VITAMIN D3 [Concomitant]
     Active Substance: CHOLECALCIFEROL
     Indication: Product used for unknown indication
  11. PROCHLORPERAZINE [Concomitant]
     Active Substance: PROCHLORPERAZINE
     Indication: Product used for unknown indication
  12. FAMOTIDINE [Concomitant]
     Active Substance: FAMOTIDINE
     Indication: Product used for unknown indication
  13. ONDANSETRON HYDROCHLORIDE [Concomitant]
     Active Substance: ONDANSETRON HYDROCHLORIDE
     Indication: Product used for unknown indication
  14. SYNTHROID [Concomitant]
     Active Substance: LEVOTHYROXINE SODIUM
     Indication: Product used for unknown indication
  15. TIMOPTIC [Concomitant]
     Active Substance: TIMOLOL MALEATE
     Indication: Product used for unknown indication
  16. ZESTORETIC [Concomitant]
     Active Substance: HYDROCHLOROTHIAZIDE\LISINOPRIL
     Indication: Product used for unknown indication
  17. PROCHLORPERAZINE MALEATE [Concomitant]
     Active Substance: PROCHLORPERAZINE MALEATE
     Indication: Product used for unknown indication
  18. PRAVASTATIN [Concomitant]
     Active Substance: PRAVASTATIN
     Indication: Product used for unknown indication
  19. ONDANSETRON [Concomitant]
     Active Substance: ONDANSETRON
     Indication: Product used for unknown indication
  20. HYDROCHLOROTHIAZIDE [Concomitant]
     Active Substance: HYDROCHLOROTHIAZIDE
     Indication: Blood pressure increased

REACTIONS (24)
  - Neuropathy peripheral [Not Recovered/Not Resolved]
  - Recurrent cancer [Unknown]
  - Abdominal distension [Not Recovered/Not Resolved]
  - Abdominal discomfort [Not Recovered/Not Resolved]
  - Nausea [Recovered/Resolved]
  - Hunger [Unknown]
  - Fatigue [Not Recovered/Not Resolved]
  - Platelet count decreased [Recovered/Resolved]
  - Diarrhoea [Unknown]
  - Pyrexia [Recovered/Resolved]
  - Myalgia [Recovering/Resolving]
  - Dysphonia [Unknown]
  - Platelet count abnormal [Recovered/Resolved]
  - Arthralgia [Recovering/Resolving]
  - Pain [Recovering/Resolving]
  - Joint injury [Recovering/Resolving]
  - Muscle spasms [Recovering/Resolving]
  - Limb discomfort [Unknown]
  - Blood pressure increased [Recovering/Resolving]
  - Anaemia [Unknown]
  - Full blood count abnormal [Unknown]
  - Product dose omission issue [Unknown]
  - Product use issue [Unknown]
  - Inappropriate schedule of product administration [Unknown]

NARRATIVE: CASE EVENT DATE: 20201216
